FAERS Safety Report 5063516-3 (Version None)
Quarter: 2006Q3

REPORT INFORMATION
  Report Type: 
  Country: None (occurrence: None)
  Receive Date: 20060727
  Receipt Date: 20060619
  Transmission Date: 20061208
  Serious: Yes (Hospitalization)
  Sender: FDA-Public Use
  Company Number: US-AMGEN-STX183649

PATIENT
  Sex: Male
  Weight: 74 kg

DRUGS (5)
  1. ENBREL [Suspect]
     Indication: PSORIATIC ARTHROPATHY
     Route: 058
     Dates: start: 20030101
  2. OXYCODONE HCL [Concomitant]
  3. SULFASALAZINE [Concomitant]
     Dates: start: 20050701
  4. TIMOPTIC [Concomitant]
     Dates: start: 20050901
  5. RELAFEN [Concomitant]
     Dates: start: 20050701

REACTIONS (3)
  - DEVICE RELATED INFECTION [None]
  - ESCHERICHIA INFECTION [None]
  - KNEE ARTHROPLASTY [None]
